FAERS Safety Report 9166789 (Version 1)
Quarter: 2012Q4

REPORT INFORMATION
  Report Type: 
  Country: FR (occurrence: FR)
  Receive Date: 20121116
  Receipt Date: 20121116
  Transmission Date: 20130627
  Serious: Yes (Hospitalization)
  Sender: FDA-Public Use
  Company Number: FR-RB-046745-12

PATIENT
  Sex: Male

DRUGS (6)
  1. SUBUTEX [Suspect]
     Dosage: Dosing details unknown
     Route: 060
  2. SUBUTEX [Suspect]
     Indication: DRUG DEPENDENCE
     Dosage: Dosing details unknown
     Route: 042
  3. ATENOLOL [Concomitant]
     Indication: HYPERTENSION
     Dosage: Dosing details unknown
     Route: 065
  4. AMLODIPINE [Concomitant]
     Indication: HYPERTENSION
     Dosage: Dosing details unknown
     Route: 065
  5. APROVEL [Concomitant]
     Indication: HYPERTENSION
     Dosage: Dosing details unknown
     Route: 065
  6. TRIATEC [Concomitant]
     Indication: HYPERTENSION
     Dosage: Dosing details unknown
     Route: 065

REACTIONS (2)
  - Glomerulonephritis membranoproliferative [Not Recovered/Not Resolved]
  - Intentional drug misuse [Unknown]
